FAERS Safety Report 24114618 (Version 1)
Quarter: 2024Q3

REPORT INFORMATION
  Report Type: Other
  Country: IT (occurrence: IT)
  Receive Date: 20240720
  Receipt Date: 20240720
  Transmission Date: 20241017
  Serious: Yes (Death)
  Sender: NUVO PHARMACEUTICALS
  Company Number: IT-Nuvo Pharmaceuticals Inc-2159366

PATIENT
  Age: 31 Year
  Sex: Male

DRUGS (11)
  1. DIAZEPAM [Suspect]
     Active Substance: DIAZEPAM
     Indication: Product used for unknown indication
     Route: 065
  2. U-47700 [Suspect]
     Active Substance: U-47700
     Route: 065
  3. ALCOHOL [Suspect]
     Active Substance: ALCOHOL
     Route: 065
  4. DULOXETINE [Suspect]
     Active Substance: DULOXETINE
     Route: 065
  5. OXAZEPAM [Suspect]
     Active Substance: OXAZEPAM
     Route: 065
  6. TEMAZEPAM [Suspect]
     Active Substance: TEMAZEPAM
     Route: 065
  7. NORDAZEPAM [Suspect]
     Active Substance: NORDAZEPAM
     Route: 065
  8. 3-HYDROXY FLUBROMAZEPAM [Suspect]
     Active Substance: 3-HYDROXY FLUBROMAZEPAM
     Route: 065
  9. FLUBROMAZEPAM [Suspect]
     Active Substance: FLUBROMAZEPAM
     Route: 065
  10. METHADONE HYDROCHLORIDE [Suspect]
     Active Substance: METHADONE HYDROCHLORIDE
     Route: 065
  11. METHADONE [Suspect]
     Active Substance: METHADONE HYDROCHLORIDE
     Route: 065

REACTIONS (2)
  - Toxicity to various agents [Fatal]
  - Drug interaction [Unknown]
